FAERS Safety Report 15580732 (Version 1)
Quarter: 2018Q4

REPORT INFORMATION
  Report Type: Spontaneous
  Country: US (occurrence: US)
  Receive Date: 20181103
  Receipt Date: 20181103
  Transmission Date: 20190205
  Serious: Yes (Other)
  Sender: FDA-Public Use
  Company Number: None

PATIENT
  Age: 28 Year
  Sex: Male
  Weight: 72 kg

DRUGS (4)
  1. SUPER GREEN HORN KRATOM [Suspect]
     Active Substance: MITRAGYNINE\HERBALS
     Indication: INTERVERTEBRAL DISC PROTRUSION
     Dosage: ?          OTHER STRENGTH:NONE;QUANTITY:6 GRAMS;?
     Route: 048
     Dates: start: 20181025, end: 20181026
  2. SUPER GREEN HORN KRATOM [Suspect]
     Active Substance: MITRAGYNINE\HERBALS
     Indication: DEPRESSION
     Dosage: ?          OTHER STRENGTH:NONE;QUANTITY:6 GRAMS;?
     Route: 048
     Dates: start: 20181025, end: 20181026
  3. SUPER GREEN HORN KRATOM [Suspect]
     Active Substance: MITRAGYNINE\HERBALS
     Indication: POST-TRAUMATIC STRESS DISORDER
     Dosage: ?          OTHER STRENGTH:NONE;QUANTITY:6 GRAMS;?
     Route: 048
     Dates: start: 20181025, end: 20181026
  4. SUPER GREEN HORN KRATOM [Suspect]
     Active Substance: MITRAGYNINE\HERBALS
     Indication: ANXIETY
     Dosage: ?          OTHER STRENGTH:NONE;QUANTITY:6 GRAMS;?
     Route: 048
     Dates: start: 20181025, end: 20181026

REACTIONS (4)
  - Diarrhoea [None]
  - Vomiting [None]
  - Hypophagia [None]
  - Hyperhidrosis [None]

NARRATIVE: CASE EVENT DATE: 20181025
